FAERS Safety Report 22088913 (Version 1)
Quarter: 2023Q1

REPORT INFORMATION
  Report Type: Spontaneous
  Country: US (occurrence: None)
  Receive Date: 20230310
  Receipt Date: 20230310
  Transmission Date: 20230418
  Serious: Yes (Other)
  Sender: FDA-Public Use
  Company Number: None

PATIENT
  Age: 45 Year
  Sex: Female
  Weight: 105.75 kg

DRUGS (14)
  1. WEGOVY [Suspect]
     Active Substance: SEMAGLUTIDE
     Indication: Insulin resistance
     Dosage: OTHER QUANTITY : 1 INJECTION(S);?OTHER FREQUENCY : 1 INJECTION PER WE;?
     Route: 058
     Dates: start: 20230308, end: 20230308
  2. PEPCID [Concomitant]
     Active Substance: FAMOTIDINE
  3. NEXIUM [Concomitant]
     Active Substance: ESOMEPRAZOLE MAGNESIUM
  4. XANAX [Concomitant]
     Active Substance: ALPRAZOLAM
  5. ZYRTEC [Concomitant]
     Active Substance: CETIRIZINE HYDROCHLORIDE
  6. ALLEGRA [Concomitant]
     Active Substance: FEXOFENADINE HYDROCHLORIDE
  7. SINGULAIR [Concomitant]
     Active Substance: MONTELUKAST SODIUM
  8. DILTIAZEM [Concomitant]
     Active Substance: DILTIAZEM
  9. PREMARIN [Concomitant]
     Active Substance: ESTROGENS, CONJUGATED
  10. ARMOUR THYROID [Concomitant]
     Active Substance: THYROID, PORCINE
  11. MAGNESIUM [Concomitant]
     Active Substance: MAGNESIUM
  12. HERBALS\WITHANIA SOMNIFERA ROOT [Concomitant]
     Active Substance: HERBALS\WITHANIA SOMNIFERA ROOT
  13. LEVOCARNITINE [Concomitant]
     Active Substance: LEVOCARNITINE
  14. PQQ [Concomitant]

REACTIONS (5)
  - Nausea [None]
  - Palpitations [None]
  - Decreased appetite [None]
  - Feeling jittery [None]
  - Middle insomnia [None]

NARRATIVE: CASE EVENT DATE: 20230308
